FAERS Safety Report 24192469 (Version 1)
Quarter: 2024Q3

REPORT INFORMATION
  Report Type: Report from Study
  Country: US (occurrence: US)
  Receive Date: 20240809
  Receipt Date: 20240809
  Transmission Date: 20241017
  Serious: Yes (Other)
  Sender: UCB
  Company Number: US-UCBSA-2022037985

PATIENT
  Age: 90 Year
  Sex: Female

DRUGS (1)
  1. LACOSAMIDE [Suspect]
     Active Substance: LACOSAMIDE
     Indication: Seizure
     Dosage: 100 MILLIGRAM, 2X/DAY (BID)
     Route: 048

REACTIONS (3)
  - Eye laser surgery [Recovered/Resolved]
  - Glaucoma [Unknown]
  - Eye disorder [Unknown]

NARRATIVE: CASE EVENT DATE: 20220609
